FAERS Safety Report 8551906-3 (Version None)
Quarter: 2012Q3

REPORT INFORMATION
  Report Type: 
  Country: None (occurrence: None)
  Receive Date: 20120730
  Receipt Date: 20120723
  Transmission Date: 20120928
  Serious: Yes (Hospitalization, Other)
  Sender: FDA-Public Use
  Company Number: US-BAXTER-2012BAX012676

PATIENT
  Sex: Female

DRUGS (5)
  1. DIANEAL LOW CALCIUM W/ DEXTROSE 1.5% [Suspect]
     Indication: PERITONEAL DIALYSIS
     Route: 033
     Dates: start: 20120628
  2. DIANEAL [Suspect]
     Indication: PERITONEAL DIALYSIS
     Route: 033
  3. DIANEAL [Suspect]
     Route: 033
     Dates: start: 20120507
  4. DIANEAL [Suspect]
     Route: 033
     Dates: start: 20120507
  5. DIANEAL [Suspect]
     Route: 033

REACTIONS (4)
  - PYREXIA [None]
  - CATHETER SITE INFECTION [None]
  - SEPSIS [None]
  - PERITONITIS BACTERIAL [None]
